FAERS Safety Report 17313259 (Version 1)
Quarter: 2020Q1

REPORT INFORMATION
  Report Type: Spontaneous
  Country: FR (occurrence: FR)
  Receive Date: 20200124
  Receipt Date: 20200124
  Transmission Date: 20200409
  Serious: Yes (Life-Threatening)
  Sender: FDA-Public Use
  Company Number: FR-ROCHE-2523763

PATIENT
  Age: 14 Year
  Sex: Female
  Weight: 53.5 kg

DRUGS (6)
  1. TERCIAN [CYAMEMAZINE] [Suspect]
     Active Substance: CYAMEMAZINE
     Indication: BEHAVIOUR DISORDER
     Dosage: 30 GOUTTES MATIN ET 35 GOUTTES SOIR
     Route: 048
  2. VALIUM [Suspect]
     Active Substance: DIAZEPAM
     Indication: AGITATION
     Dosage: MOST RECENT DOSE PRIOR TO AE 10/OCT/2019
     Route: 042
     Dates: start: 20191010
  3. LOXAPAC [LOXAPINE] [Suspect]
     Active Substance: LOXAPINE
     Indication: AGITATION
     Route: 030
     Dates: start: 20191009, end: 20191010
  4. ESOMEPRAZOLE. [Concomitant]
     Active Substance: ESOMEPRAZOLE MAGNESIUM
  5. NEULEPTIL [Suspect]
     Active Substance: PERICIAZINE
     Indication: BEHAVIOUR DISORDER
     Route: 048
     Dates: start: 201908
  6. MICROLAX [SODIUM CITRATE;SODIUM LAURYL SULFOACETATE;SORBITOL] [Concomitant]
     Active Substance: SODIUM CITRATE\SODIUM LAURYL SULFOACETATE\SORBITOL

REACTIONS (3)
  - Lower respiratory tract congestion [Recovered/Resolved]
  - Respiratory distress [Recovered/Resolved]
  - Coma [Recovered/Resolved]

NARRATIVE: CASE EVENT DATE: 20191010
